FAERS Safety Report 19913324 (Version 2)
Quarter: 2021Q4

REPORT INFORMATION
  Report Type: Spontaneous
  Country: US (occurrence: US)
  Receive Date: 20211004
  Receipt Date: 20211110
  Transmission Date: 20220303
  Serious: No
  Sender: FDA-Public Use
  Company Number: US-GLAXOSMITHKLINE-USCH2021067687

PATIENT
  Age: 70 Year
  Sex: Male

DRUGS (2)
  1. ABREVA [Suspect]
     Active Substance: DOCOSANOL
     Indication: Herpes simplex
     Dosage: UNK
     Dates: start: 20210914
  2. ABREVA [Suspect]
     Active Substance: DOCOSANOL
     Indication: Pain

REACTIONS (1)
  - Therapeutic product effect incomplete [Unknown]
